FAERS Safety Report 8943837 (Version 3)
Quarter: 2013Q2

REPORT INFORMATION
  Report Type: Spontaneous
  Country: US (occurrence: US)
  Receive Date: 20121204
  Receipt Date: 20130619
  Transmission Date: 20140414
  Serious: Yes (Other)
  Sender: FDA-Public Use
  Company Number: PHEH2012US023447

PATIENT
  Sex: Female

DRUGS (16)
  1. DIOVAN HCT [Suspect]
     Indication: BLOOD PRESSURE ABNORMAL
     Dosage: 1 DF (160 MG VALS AND 12.5 MG HCTZ) QD
     Route: 048
  2. NOVOLOG [Concomitant]
  3. LANTEUF [Concomitant]
  4. PRAVASTATIN [Concomitant]
  5. TYLENOL [Concomitant]
  6. RITUXAN [Concomitant]
  7. CYTOXAN [Concomitant]
  8. VP-16 [Concomitant]
  9. MATULANE [Concomitant]
  10. PREDNISONE [Concomitant]
  11. BACTRIM [Concomitant]
  12. ACYCLOVIR [Concomitant]
  13. ALLOPURINOL [Concomitant]
  14. NEULASTA [Concomitant]
  15. ALOXI [Concomitant]
  16. BENADRYL [Concomitant]

REACTIONS (2)
  - Lymphoma [Unknown]
  - Arthritis [Not Recovered/Not Resolved]
